FAERS Safety Report 24708364 (Version 3)
Quarter: 2025Q1

REPORT INFORMATION
  Report Type: Report from Study
  Country: SI (occurrence: SI)
  Receive Date: 20241207
  Receipt Date: 20250102
  Transmission Date: 20250408
  Serious: Yes (Other)
  Sender: ALEXION PHARMACEUTICALS
  Company Number: SI-ASTRAZENECA-202411EEA025277SI

PATIENT
  Age: 71 Year
  Weight: 57 kg

DRUGS (16)
  1. DURVALUMAB [Suspect]
     Active Substance: DURVALUMAB
     Indication: Lung neoplasm malignant
     Dosage: 1500 MILLIGRAM, Q3W
  2. DURVALUMAB [Suspect]
     Active Substance: DURVALUMAB
     Dosage: 1500 MILLIGRAM, Q3W
     Route: 042
  3. DURVALUMAB [Suspect]
     Active Substance: DURVALUMAB
     Dosage: 1500 MILLIGRAM, Q3W
  4. DURVALUMAB [Suspect]
     Active Substance: DURVALUMAB
     Dosage: 1500 MILLIGRAM, Q3W
     Route: 042
  5. CISPLATIN [Suspect]
     Active Substance: CISPLATIN
     Indication: Lung neoplasm malignant
     Dosage: 120 MILLIGRAM, Q3W
     Route: 042
  6. CISPLATIN [Suspect]
     Active Substance: CISPLATIN
     Dosage: 120 MILLIGRAM, Q3W
  7. AMLODIPINE BESYLATE\PERINDOPRIL ERBUMINE [Concomitant]
     Active Substance: AMLODIPINE BESYLATE\PERINDOPRIL ERBUMINE
     Indication: Hypertension
     Dosage: 1 DOSAGE FORM, QD
     Route: 048
  8. AMLODIPINE BESYLATE\PERINDOPRIL ERBUMINE [Concomitant]
     Active Substance: AMLODIPINE BESYLATE\PERINDOPRIL ERBUMINE
     Dosage: 1 DOSAGE FORM, QD
  9. FOLICA [Concomitant]
     Dosage: UNK, BID
     Route: 048
  10. FOLICA [Concomitant]
     Dosage: UNK, BID
  11. REGLAN [Concomitant]
     Active Substance: METOCLOPRAMIDE HYDROCHLORIDE
     Indication: Nausea
     Route: 048
  12. REGLAN [Concomitant]
     Active Substance: METOCLOPRAMIDE HYDROCHLORIDE
  13. PANTOPRAZOLE SODIUM [Concomitant]
     Active Substance: PANTOPRAZOLE SODIUM
     Indication: Gastrooesophageal reflux disease
     Route: 048
  14. PANTOPRAZOLE SODIUM [Concomitant]
     Active Substance: PANTOPRAZOLE SODIUM
  15. ZIEXTENZO [Concomitant]
     Active Substance: PEGFILGRASTIM-BMEZ
     Indication: Neutropenia
     Route: 058
  16. ZIEXTENZO [Concomitant]
     Active Substance: PEGFILGRASTIM-BMEZ

REACTIONS (1)
  - Chronic kidney disease [Recovered/Resolved]
